FAERS Safety Report 12441642 (Version 1)
Quarter: 2016Q2

REPORT INFORMATION
  Report Type: Spontaneous
  Country: FR (occurrence: FR)
  Receive Date: 20160607
  Receipt Date: 20160607
  Transmission Date: 20160815
  Serious: Yes (Hospitalization, Other)
  Sender: FDA-Public Use
  Company Number: FR-BRISTOL-MYERS SQUIBB COMPANY-BMS-2016-043159

PATIENT
  Age: 66 Year
  Sex: Male

DRUGS (5)
  1. YERVOY [Suspect]
     Active Substance: IPILIMUMAB
     Dosage: UNK
     Route: 042
     Dates: start: 20160107
  2. YERVOY [Suspect]
     Active Substance: IPILIMUMAB
     Dosage: UNK
     Route: 042
     Dates: start: 20160128
  3. PROFENID [Suspect]
     Active Substance: KETOPROFEN
     Indication: PRODUCT USED FOR UNKNOWN INDICATION
     Dosage: 100 MG, BID
     Route: 048
     Dates: start: 201603, end: 20160317
  4. YERVOY [Suspect]
     Active Substance: IPILIMUMAB
     Dosage: UNK
     Route: 042
     Dates: start: 20160218
  5. YERVOY [Suspect]
     Active Substance: IPILIMUMAB
     Indication: MALIGNANT MELANOMA
     Dosage: UNK
     Route: 042
     Dates: start: 20151218

REACTIONS (2)
  - Cholestasis [Recovering/Resolving]
  - Adrenal insufficiency [Recovering/Resolving]

NARRATIVE: CASE EVENT DATE: 201601
